FAERS Safety Report 5407468-2 (Version None)
Quarter: 2007Q3

REPORT INFORMATION
  Report Type: 
  Country: None (occurrence: None)
  Receive Date: 20070807
  Receipt Date: 20070730
  Transmission Date: 20080115
  Serious: Yes (Other)
  Sender: FDA-Public Use
  Company Number: CA-PFIZER INC-2007063352

PATIENT
  Sex: Female
  Weight: 79.4 kg

DRUGS (10)
  1. LYRICA [Suspect]
     Indication: PAIN
     Dates: start: 20070701, end: 20070730
  2. TETRACYCLINE [Suspect]
  3. INSULIN [Concomitant]
  4. CRESTOR [Concomitant]
  5. ALL OTHER THERAPEUTIC PRODUCTS [Concomitant]
  6. NORVASC [Concomitant]
  7. ALL OTHER THERAPEUTIC PRODUCTS [Concomitant]
  8. PLAVIX [Concomitant]
  9. ASPIRIN [Concomitant]
  10. ZITHROMAX [Concomitant]

REACTIONS (4)
  - PARAESTHESIA ORAL [None]
  - SOMNOLENCE [None]
  - SWELLING [None]
  - THROAT TIGHTNESS [None]
